FAERS Safety Report 9725016 (Version 2)
Quarter: 2013Q4

REPORT INFORMATION
  Report Type: Spontaneous
  Country: US (occurrence: US)
  Receive Date: 20131203
  Receipt Date: 20131218
  Transmission Date: 20140711
  Serious: Yes (Death)
  Sender: FDA-Public Use
  Company Number: US-AMGEN-USASP2013083755

PATIENT
  Age: 87 Year
  Sex: Female

DRUGS (2)
  1. PROLIA [Suspect]
     Indication: OSTEOPOROSIS POSTMENOPAUSAL
     Dosage: UNK
     Route: 065
     Dates: start: 20111117
  2. PROLIA [Suspect]
     Dosage: UNK
     Route: 065
     Dates: start: 20120620

REACTIONS (3)
  - Death [Fatal]
  - Bone density abnormal [Unknown]
  - Gastrooesophageal reflux disease [Unknown]
